FAERS Safety Report 4486715-8 (Version None)
Quarter: 2004Q4

REPORT INFORMATION
  Report Type: 
  Country: None (occurrence: None)
  Receive Date: 20041021
  Receipt Date: 20040912
  Transmission Date: 20050328
  Serious: Yes (Hospitalization)
  Sender: FDA-Public Use
  Company Number: 2004238979US

PATIENT
  Age: 51 Year
  Sex: Female
  Weight: 81.6 kg

DRUGS (16)
  1. CELEBREX [Suspect]
     Indication: OSTEOPENIA
     Dosage: 200 MG, QD
     Dates: start: 20040801, end: 20040101
  2. WARFARIN SODIUM [Concomitant]
  3. GUAIFENESIN [Concomitant]
  4. POTASSIUM CHLORIDE [Concomitant]
  5. PREVACID [Concomitant]
  6. DEMADEX [Concomitant]
  7. PREDNISONE [Concomitant]
  8. CALCIUM WITH VITAMIN D (ERGOCALCIFEROL, CALCIUM PHOSPHATE, CALCIUM SOD [Concomitant]
  9. DIABETA [Concomitant]
  10. PROZAC [Concomitant]
  11. ATIVAN [Concomitant]
  12. SPIRONOLACTONE [Concomitant]
  13. REGLAN [Concomitant]
  14. REMERON [Concomitant]
  15. CLARITIN [Concomitant]
  16. OXYGEN (OXYGEN) [Concomitant]

REACTIONS (17)
  - BLOOD POTASSIUM DECREASED [None]
  - BRAIN NATRIURETIC PEPTIDE INCREASED [None]
  - CHROMATURIA [None]
  - CONFUSIONAL STATE [None]
  - DISORIENTATION [None]
  - DYSPNOEA [None]
  - HEADACHE [None]
  - HEART RATE ABNORMAL [None]
  - HEPATIC ENZYME INCREASED [None]
  - INTERNATIONAL NORMALISED RATIO DECREASED [None]
  - INTERNATIONAL NORMALISED RATIO INCREASED [None]
  - NAUSEA [None]
  - OEDEMA [None]
  - OEDEMA PERIPHERAL [None]
  - POLLAKIURIA [None]
  - RENAL DISORDER [None]
  - WEIGHT INCREASED [None]
